FAERS Safety Report 8481327-3 (Version None)
Quarter: 2012Q3

REPORT INFORMATION
  Report Type: 
  Country: None (occurrence: None)
  Receive Date: 20120702
  Receipt Date: 20120622
  Transmission Date: 20120928
  Serious: Yes (Hospitalization)
  Sender: FDA-Public Use
  Company Number: US-JNJFOC-20120501145

PATIENT
  Sex: Female
  Weight: 75.75 kg

DRUGS (11)
  1. REMICADE [Suspect]
     Route: 042
     Dates: start: 20120309
  2. BENADRYL [Concomitant]
     Indication: PREMEDICATION
     Route: 048
  3. REMICADE [Suspect]
     Indication: RHEUMATOID ARTHRITIS
     Route: 042
  4. BENADRYL [Concomitant]
     Route: 042
  5. SOLU-MEDROL [Concomitant]
     Indication: PREMEDICATION
     Route: 042
  6. CELEBREX [Concomitant]
     Indication: RHEUMATOID ARTHRITIS
     Route: 065
  7. ARAVA [Concomitant]
     Indication: RHEUMATOID ARTHRITIS
     Route: 065
  8. ACETAMINOPHEN [Concomitant]
     Indication: PREMEDICATION
     Route: 065
  9. REMICADE [Suspect]
     Route: 042
     Dates: start: 20120412
  10. PREDNISONE TAB [Concomitant]
     Indication: RHEUMATOID ARTHRITIS
     Route: 065
  11. REMICADE [Suspect]
     Route: 042
     Dates: start: 20070401, end: 20070501

REACTIONS (5)
  - DYSPNOEA [None]
  - MUSCLE SPASMS [None]
  - SCIATICA [None]
  - INFUSION RELATED REACTION [None]
  - BACK PAIN [None]
